FAERS Safety Report 18332078 (Version 4)
Quarter: 2020Q4

REPORT INFORMATION
  Report Type: Spontaneous
  Country: US (occurrence: US)
  Receive Date: 20200930
  Receipt Date: 20201028
  Transmission Date: 20210113
  Serious: Yes (Other)
  Sender: FDA-Public Use
  Company Number: US-ALLERGAN-2036681US

PATIENT
  Sex: Male

DRUGS (3)
  1. RESTASIS [Suspect]
     Active Substance: CYCLOSPORINE
     Indication: DRY EYE
     Dosage: 2 GTT, BID
     Route: 047
     Dates: start: 2010
  2. ALAWAY [Concomitant]
     Active Substance: KETOTIFEN FUMARATE
     Route: 047
  3. TIMOLOL. [Concomitant]
     Active Substance: TIMOLOL
     Route: 047

REACTIONS (3)
  - Lung carcinoma cell type unspecified stage I [Recovered/Resolved]
  - Rib fracture [Recovered/Resolved]
  - Lung opacity [Unknown]

NARRATIVE: CASE EVENT DATE: 201505
